FAERS Safety Report 19541283 (Version 6)
Quarter: 2024Q3

REPORT INFORMATION
  Report Type: Spontaneous
  Country: PK (occurrence: PK)
  Receive Date: 20210714
  Receipt Date: 20240930
  Transmission Date: 20241017
  Serious: Yes (Hospitalization)
  Sender: AMGEN
  Company Number: PK-PFIZER INC-2021831221

PATIENT
  Age: 13 Year
  Sex: Male

DRUGS (14)
  1. ENBREL [Suspect]
     Active Substance: ETANERCEPT
     Indication: Ankylosing spondylitis
     Dosage: UNK
     Route: 058
     Dates: start: 2021
  2. ENBREL [Suspect]
     Active Substance: ETANERCEPT
     Indication: HLA-B*27 positive
     Dosage: 50 MG, EVERY OTHER FRIDAYS
     Route: 058
  3. ENBREL [Suspect]
     Active Substance: ETANERCEPT
     Dosage: UNK
     Route: 065
     Dates: start: 20230705
  4. ENBREL [Suspect]
     Active Substance: ETANERCEPT
     Dosage: 50 MG, WEEKLY FOR 8 WEEKS THEN EVERY SECOND WEEK
     Route: 058
  5. PANADOL [Concomitant]
     Active Substance: ACETAMINOPHEN
     Indication: Pain
     Dosage: UNK, 3X/DAY
  6. ETORICOXIB [Concomitant]
     Active Substance: ETORICOXIB
     Indication: Pain
     Dosage: 120 MG, 1X/DAY
  7. Risek [Concomitant]
     Indication: Abdominal pain upper
     Dosage: 40 MG 1 BEFORE BREAKFAST IF TAKING STRONG PAINKILLER ONLY WITH STRONG PAIN KILLER OR FOR STOMACHACHE
  8. Cal one D forte [Concomitant]
     Indication: Prophylaxis
     Dosage: UNK
  9. ALPRAZOLAM [Concomitant]
     Active Substance: ALPRAZOLAM
     Indication: Stress
     Dosage: 0.5 MG, 2X/DAY
  10. ALPRAZOLAM [Concomitant]
     Active Substance: ALPRAZOLAM
     Indication: Depressed mood
     Dosage: UNK
  11. SERT [Concomitant]
     Dosage: 100 MG, DAILY
  12. SULFASALAZINE [Concomitant]
     Active Substance: SULFASALAZINE
     Dosage: 500 MG (2 + 2 CONTINUE 2 + 2 IN MORNING AND EVENING)
  13. DELTACORTRIL [Concomitant]
     Active Substance: PREDNISOLONE
     Dosage: 5 MG
  14. PREDNISOLONE [Concomitant]
     Active Substance: PREDNISOLONE
     Dosage: UNK
     Route: 048

REACTIONS (5)
  - Pain [Unknown]
  - Mobility decreased [Unknown]
  - Heart rate increased [Unknown]
  - Off label use [Unknown]
  - Intentional product misuse [Unknown]
